FAERS Safety Report 5669533-4 (Version None)
Quarter: 2008Q1

REPORT INFORMATION
  Report Type: 
  Country: None (occurrence: None)
  Receive Date: 20080317
  Receipt Date: 20080307
  Transmission Date: 20080703
  Serious: Yes (Other)
  Sender: FDA-Public Use
  Company Number: PHBS2008TR03258

PATIENT
  Age: 40 Year
  Sex: Female

DRUGS (2)
  1. ELIDEL [Suspect]
     Indication: ROSACEA
     Route: 061
  2. ULTRABASE [Concomitant]
     Route: 061

REACTIONS (8)
  - CONDITION AGGRAVATED [None]
  - ERYTHEMA [None]
  - OEDEMA [None]
  - PAIN OF SKIN [None]
  - RASH PAPULAR [None]
  - RASH PUSTULAR [None]
  - ROSACEA [None]
  - SKIN BURNING SENSATION [None]
